FAERS Safety Report 18477943 (Version 1)
Quarter: 2020Q4

REPORT INFORMATION
  Report Type: Spontaneous
  Country: CN (occurrence: CN)
  Receive Date: 20201108
  Receipt Date: 20201108
  Transmission Date: 20210114
  Serious: Yes (Other)
  Sender: FDA-Public Use
  Company Number: CN-BAXTER-2020BAX022516

PATIENT
  Age: 61 Year
  Sex: Female
  Weight: 50 kg

DRUGS (9)
  1. SODIUM CHLORIDE. [Suspect]
     Active Substance: SODIUM CHLORIDE
     Indication: MENIERE^S DISEASE
     Dosage: GASTRODIN DILUTED IN SODIUM CHLORIDE
     Route: 041
     Dates: start: 20201029, end: 20201029
  2. POTASSIUM CHLORIDE. [Suspect]
     Active Substance: POTASSIUM CHLORIDE
     Indication: MENIERE^S DISEASE
     Route: 041
     Dates: start: 20201029, end: 20201029
  3. 20% MANNITOL INJECTION [Suspect]
     Active Substance: MANNITOL
     Indication: MENIERE^S DISEASE
     Route: 041
     Dates: start: 20201029, end: 20201029
  4. GASTRODIN. [Suspect]
     Active Substance: GASTRODIN
     Indication: MENIERE^S DISEASE
     Route: 041
     Dates: start: 20201029, end: 20201029
  5. SODIUM CHLORIDE. [Suspect]
     Active Substance: SODIUM CHLORIDE
     Indication: MENIERE^S DISEASE
     Dosage: OMEPRAZOLE DILUTED IN SODIUM CHLORIDE
     Route: 041
     Dates: start: 20201029, end: 20201029
  6. OMEPRAZOLE SODIUM [Suspect]
     Active Substance: OMEPRAZOLE SODIUM
     Indication: MENIERE^S DISEASE
     Route: 041
     Dates: start: 20201029, end: 20201029
  7. VITAMIN B6 [Suspect]
     Active Substance: PYRIDOXINE HYDROCHLORIDE
     Indication: MENIERE^S DISEASE
     Route: 041
     Dates: start: 20201029, end: 20201029
  8. SODIUM CITICOLINE [Suspect]
     Active Substance: CITICOLINE SODIUM
     Indication: MENIERE^S DISEASE
     Route: 041
     Dates: start: 20201029, end: 20201029
  9. GLUCOSE [Suspect]
     Active Substance: DEXTROSE
     Indication: MENIERE^S DISEASE
     Dosage: POTASSIUM CHLORIDE DILUTED IN 10% GLUCOSE
     Route: 041
     Dates: start: 20201029, end: 20201029

REACTIONS (1)
  - Anaphylactoid reaction [Recovering/Resolving]

NARRATIVE: CASE EVENT DATE: 20201029
